FAERS Safety Report 15174417 (Version 1)
Quarter: 2018Q3

REPORT INFORMATION
  Report Type: Report from Study
  Country: US (occurrence: US)
  Receive Date: 20180720
  Receipt Date: 20180720
  Transmission Date: 20181010
  Serious: No
  Sender: FDA-Public Use
  Company Number: US-AMGEN-USASL2018059992

PATIENT
  Age: 60 Year
  Sex: Male

DRUGS (1)
  1. REPATHA [Suspect]
     Active Substance: EVOLOCUMAB
     Indication: PRODUCT USED FOR UNKNOWN INDICATION
     Dosage: 140 MG, UNK
     Route: 065

REACTIONS (8)
  - Confusional state [Unknown]
  - Pain [Unknown]
  - Peripheral swelling [Unknown]
  - Dyspnoea [Unknown]
  - Back pain [Unknown]
  - Influenza like illness [Unknown]
  - Contusion [Unknown]
  - Urticaria [Unknown]

NARRATIVE: CASE EVENT DATE: 201804
